FAERS Safety Report 20633911 (Version 6)
Quarter: 2024Q3

REPORT INFORMATION
  Report Type: Report from Study
  Country: CO (occurrence: CO)
  Receive Date: 20220324
  Receipt Date: 20240724
  Transmission Date: 20241016
  Serious: Yes (Hospitalization)
  Sender: NOVARTIS
  Company Number: CO-NOVARTISPH-NVSC2022CO065011

PATIENT
  Sex: Female
  Weight: 61 kg

DRUGS (2)
  1. COSENTYX [Suspect]
     Active Substance: SECUKINUMAB
     Indication: Psoriatic arthropathy
     Dosage: 300 MG, QMO
     Route: 058
     Dates: start: 20190115
  2. COSENTYX [Suspect]
     Active Substance: SECUKINUMAB
     Dosage: 300 MG, QMO
     Route: 058
     Dates: start: 20191118, end: 20240422

REACTIONS (5)
  - Localised infection [Unknown]
  - Influenza [Recovered/Resolved]
  - Skin lesion [Recovered/Resolved]
  - Psoriasis [Unknown]
  - Skin irritation [Recovered/Resolved]
